FAERS Safety Report 20190559 (Version 1)
Quarter: 2021Q4

REPORT INFORMATION
  Report Type: Spontaneous
  Country: US (occurrence: None)
  Receive Date: 20211216
  Receipt Date: 20211216
  Transmission Date: 20220304
  Serious: Yes (Other)
  Sender: FDA-Public Use
  Company Number: US-MDD US Operations-2020SUP00786

PATIENT
  Age: 61 Year
  Sex: Female
  Weight: 108.84 kg

DRUGS (5)
  1. TROKENDI XR [Suspect]
     Active Substance: TOPIRAMATE
     Indication: Partial seizures
     Dosage: 300 MG, 1X/DAY AT NIGHT AT BEDTIME
     Route: 048
     Dates: end: 2017
  2. TROKENDI XR [Suspect]
     Active Substance: TOPIRAMATE
     Dosage: 200 MG, 1X/DAY AT NIGHT AT BEDTIME
     Route: 048
     Dates: start: 2011
  3. TROKENDI XR [Suspect]
     Active Substance: TOPIRAMATE
     Dosage: 300 MG, 1X/DAY AT NIGHT AT BEDTIME
     Route: 048
     Dates: end: 2017
  4. TROKENDI XR [Suspect]
     Active Substance: TOPIRAMATE
     Dosage: 200 MG, 1X/DAY AT NIGHT AT BEDTIME
     Route: 048
     Dates: start: 2011
  5. TOPIRAMATE [Suspect]
     Active Substance: TOPIRAMATE

REACTIONS (5)
  - Seizure [Recovered/Resolved]
  - Therapeutic product effect delayed [Recovered/Resolved]
  - Insomnia [Not Recovered/Not Resolved]
  - Somnolence [Not Recovered/Not Resolved]
  - Fatigue [Unknown]

NARRATIVE: CASE EVENT DATE: 20110601
